FAERS Safety Report 8500834-8 (Version None)
Quarter: 2012Q2

REPORT INFORMATION
  Report Type: 
  Country: None (occurrence: None)
  Receive Date: 20120405
  Receipt Date: 20110117
  Transmission Date: 20120825
  Serious: Yes (Other)
  Sender: FDA-Public Use
  Company Number: PHHY2011US05117

PATIENT
  Age: 57 Year
  Sex: Female
  Weight: 58 kg

DRUGS (14)
  1. BENADRYL [Concomitant]
  2. OMRON BP CUFF [Concomitant]
  3. RECLAST [Suspect]
     Indication: OSTEOPOROSIS
     Dosage: 5 MG, ONCE YEARLY, INTRAVENOUS
     Route: 042
     Dates: start: 20100122
  4. ALLEGRA [Concomitant]
  5. LUNESTA [Concomitant]
  6. SOLU-CORTEF (HYDROCHORTISONE SODIUM SUCCINATE) [Concomitant]
  7. ZYRTEC [Concomitant]
  8. ESTRACE [Concomitant]
  9. VIVELLE-DOT [Concomitant]
  10. VITAMIN D [Concomitant]
  11. TESTOSTERONE [Concomitant]
  12. ZANTAC [Concomitant]
  13. PREDNISONE TAB [Concomitant]
  14. MEDROL [Concomitant]

REACTIONS (9)
  - THROAT TIGHTNESS [None]
  - OEDEMA MOUTH [None]
  - PARAESTHESIA ORAL [None]
  - BLOOD PRESSURE INCREASED [None]
  - DRUG HYPERSENSITIVITY [None]
  - LIP SWELLING [None]
  - HYPOAESTHESIA [None]
  - EPHELIDES [None]
  - SWOLLEN TONGUE [None]
